FAERS Safety Report 9524704 (Version 3)
Quarter: 2015Q1

REPORT INFORMATION
  Report Type: Report from Study
  Country: DE (occurrence: DE)
  Receive Date: 20130916
  Receipt Date: 20150330
  Transmission Date: 20150721
  Serious: Yes (Hospitalization)
  Sender: FDA-Public Use
  Company Number: PHHY2013DE101854

PATIENT
  Age: 23 Year
  Sex: Female

DRUGS (1)
  1. EXTAVIA [Suspect]
     Active Substance: INTERFERON BETA-1B
     Indication: MULTIPLE SCLEROSIS
     Dosage: 250 UG, QOD
     Route: 058
     Dates: start: 20130521

REACTIONS (4)
  - Thermal burn [Not Recovered/Not Resolved]
  - Scab [Not Recovered/Not Resolved]
  - Sepsis [Not Recovered/Not Resolved]
  - Burn infection [Not Recovered/Not Resolved]

NARRATIVE: CASE EVENT DATE: 20130906
